FAERS Safety Report 7790108-5 (Version None)
Quarter: 2011Q3

REPORT INFORMATION
  Report Type: 
  Country: None (occurrence: None)
  Receive Date: 20110930
  Receipt Date: 20100819
  Transmission Date: 20111222
  Serious: No
  Sender: FDA-Public Use
  Company Number: US-ASTRAZENECA-2010SE07589

PATIENT
  Age: 763 Month
  Sex: Female
  Weight: 70.3 kg

DRUGS (4)
  1. VITAMIN TAB [Concomitant]
  2. CALCIUM PLUS D [Concomitant]
     Indication: OSTEOPENIA
  3. CITRACIL [Concomitant]
     Indication: MINERAL SUPPLEMENTATION
  4. ARIMIDEX [Suspect]
     Indication: BREAST CANCER
     Route: 048
     Dates: start: 20070401

REACTIONS (5)
  - PARAESTHESIA [None]
  - TINNITUS [None]
  - BLOOD OESTROGEN INCREASED [None]
  - CRYING [None]
  - PAIN IN EXTREMITY [None]
